FAERS Safety Report 20468290 (Version 1)
Quarter: 2022Q1

REPORT INFORMATION
  Report Type: Spontaneous
  Country: BR (occurrence: BR)
  Receive Date: 20220214
  Receipt Date: 20220214
  Transmission Date: 20220423
  Serious: Yes (Other)
  Sender: FDA-Public Use
  Company Number: BR-KOREA IPSEN Pharma-2022-03352

PATIENT
  Age: 40 Year
  Sex: Male

DRUGS (1)
  1. DYSPORT [Suspect]
     Active Substance: ABOBOTULINUMTOXINA
     Indication: Skin cosmetic procedure
     Dosage: DOSE AND STRENGTH NOT REPORTED
     Route: 065
     Dates: start: 20220201, end: 20220201

REACTIONS (10)
  - Delirium [Unknown]
  - Injection site swelling [Unknown]
  - Pyrexia [Unknown]
  - Headache [Unknown]
  - Eyelid contusion [Unknown]
  - Eye swelling [Unknown]
  - Gait inability [Unknown]
  - Impaired work ability [Unknown]
  - Facial asymmetry [Unknown]
  - Product use issue [Unknown]

NARRATIVE: CASE EVENT DATE: 20220201
